FAERS Safety Report 23859752 (Version 2)
Quarter: 2024Q3

REPORT INFORMATION
  Report Type: Report from Study
  Country: CA (occurrence: CA)
  Receive Date: 20240515
  Receipt Date: 20240722
  Transmission Date: 20241017
  Serious: Yes (Other)
  Sender: APELLIS PHARMACEUTICALS
  Company Number: CA-BIOVITRUM-2024-CA-005913

PATIENT

DRUGS (3)
  1. PEGCETACOPLAN [Suspect]
     Active Substance: PEGCETACOPLAN
     Indication: Paroxysmal nocturnal haemoglobinuria
     Dosage: 2 TIMES A WEEK
     Route: 058
     Dates: start: 20231212
  2. APIXABAN [Concomitant]
     Active Substance: APIXABAN
     Indication: Product used for unknown indication
     Dosage: 5 MG DAILY EXCEPT WHEN MENSTRUATING
  3. SOLIRIS [Concomitant]
     Active Substance: ECULIZUMAB
     Indication: Product used for unknown indication
     Dosage: Q2 WEEKS

REACTIONS (3)
  - Haemoglobin decreased [Unknown]
  - Heavy menstrual bleeding [Unknown]
  - Product dose omission issue [Unknown]
